APPROVED DRUG PRODUCT: CLOZAPINE
Active Ingredient: CLOZAPINE
Strength: 25MG
Dosage Form/Route: TABLET;ORAL
Application: A075162 | Product #001
Applicant: PAR PHARMACEUTICAL
Approved: Apr 26, 2005 | RLD: No | RS: No | Type: DISCN